FAERS Safety Report 9246030 (Version 5)
Quarter: 2019Q3

REPORT INFORMATION
  Report Type: Report from Study
  Country: CA (occurrence: CA)
  Receive Date: 20130422
  Receipt Date: 20190822
  Transmission Date: 20191005
  Serious: Yes (Hospitalization, Other)
  Sender: FDA-Public Use
  Company Number: CA-ROCHE-1214033

PATIENT
  Age: 34 Year
  Sex: Female
  Weight: 109.5 kg

DRUGS (7)
  1. RITUXAN [Suspect]
     Active Substance: RITUXIMAB
     Indication: GRANULOMATOSIS WITH POLYANGIITIS
     Route: 042
     Dates: start: 20120622
  2. RITUXAN [Suspect]
     Active Substance: RITUXIMAB
     Indication: VASCULITIS
  3. METHYLPREDNISOLONE. [Concomitant]
     Active Substance: METHYLPREDNISOLONE
     Indication: PREMEDICATION
     Route: 042
     Dates: start: 20120622
  4. SEPTRA [Concomitant]
     Active Substance: SULFAMETHOXAZOLE\TRIMETHOPRIM
  5. DIPHENHYDRAMINE HCL [Concomitant]
     Active Substance: DIPHENHYDRAMINE HYDROCHLORIDE
     Indication: PREMEDICATION
     Route: 048
     Dates: start: 20120622
  6. ACETAMINOPHEN. [Concomitant]
     Active Substance: ACETAMINOPHEN
     Indication: PREMEDICATION
     Route: 048
     Dates: start: 20120622
  7. TECTA [Concomitant]
     Active Substance: PANTOPRAZOLE MAGNESIUM

REACTIONS (14)
  - Sinus congestion [Not Recovered/Not Resolved]
  - Intentional product use issue [Unknown]
  - Sinusitis [Not Recovered/Not Resolved]
  - Pyrexia [Unknown]
  - Nodule [Not Recovered/Not Resolved]
  - Eye inflammation [Not Recovered/Not Resolved]
  - Arthralgia [Not Recovered/Not Resolved]
  - Laryngeal stenosis [Not Recovered/Not Resolved]
  - Eye swelling [Not Recovered/Not Resolved]
  - Off label use [Unknown]
  - Tension headache [Not Recovered/Not Resolved]
  - Auditory disorder [Unknown]
  - Pulmonary pain [Not Recovered/Not Resolved]
  - Xanthelasma [Unknown]

NARRATIVE: CASE EVENT DATE: 201304
